FAERS Safety Report 4514282-9 (Version None)
Quarter: 2004Q4

REPORT INFORMATION
  Report Type: 
  Country: None (occurrence: None)
  Receive Date: 20041124
  Receipt Date: 20041108
  Transmission Date: 20050328
  Serious: Yes (Hospitalization, Other)
  Sender: FDA-Public Use
  Company Number: DE_030711712

PATIENT
  Age: 30 Year
  Sex: Female

DRUGS (1)
  1. ZYPREXA [Suspect]
     Indication: SCHIZOPHRENIA
     Dosage: 10 MG DAY
     Dates: start: 20030301, end: 20030602

REACTIONS (18)
  - APHASIA [None]
  - BRAIN OEDEMA [None]
  - COGNITIVE DISORDER [None]
  - CRYING [None]
  - DEPRESSED LEVEL OF CONSCIOUSNESS [None]
  - DISTURBANCE IN ATTENTION [None]
  - DRUG TOXICITY [None]
  - GRAND MAL CONVULSION [None]
  - HYPERTONIA [None]
  - HYPONATRAEMIA [None]
  - MOTOR DYSFUNCTION [None]
  - MUSCLE TWITCHING [None]
  - PUPILLARY LIGHT REFLEX TESTS ABNORMAL [None]
  - PYREXIA [None]
  - RESTLESSNESS [None]
  - RHABDOMYOLYSIS [None]
  - STUPOR [None]
  - VOMITING [None]
